FAERS Safety Report 16913984 (Version 2)
Quarter: 2020Q3

REPORT INFORMATION
  Report Type: Spontaneous
  Country: US (occurrence: US)
  Receive Date: 20191014
  Receipt Date: 20200904
  Transmission Date: 20201102
  Serious: No
  Sender: FDA-Public Use
  Company Number: US-PFIZER INC-2019439891

PATIENT
  Age: 73 Year
  Sex: Female

DRUGS (1)
  1. ATORVASTATIN CALCIUM. [Suspect]
     Active Substance: ATORVASTATIN CALCIUM
     Dosage: 40 MG, DAILY (40MG / QTY 90 / DAY SUPPLY 90)

REACTIONS (6)
  - Back pain [Unknown]
  - Pain [Unknown]
  - Insomnia [Unknown]
  - Pain in extremity [Unknown]
  - Abdominal discomfort [Unknown]
  - Diarrhoea [Unknown]
